FAERS Safety Report 21622977 (Version 1)
Quarter: 2022Q4

REPORT INFORMATION
  Report Type: Spontaneous
  Country: PL (occurrence: PL)
  Receive Date: 20221121
  Receipt Date: 20221121
  Transmission Date: 20230113
  Serious: Yes (Hospitalization)
  Sender: FDA-Public Use
  Company Number: PL-EMA-DD-20201202-faizan_m-134322

PATIENT
  Age: 32 Year
  Sex: Female

DRUGS (7)
  1. OMEPRAZOLE [Interacting]
     Active Substance: OMEPRAZOLE
     Indication: Dyspepsia
     Dosage: 40 MG, 1X PER DAY
  2. ACETAMINOPHEN [Suspect]
     Active Substance: ACETAMINOPHEN
     Indication: Headache
     Dosage: 4 GRAM DAILY;
  3. SERTRALINE [Interacting]
     Active Substance: SERTRALINE HYDROCHLORIDE
     Dosage: 100 MILLIGRAM DAILY;
  4. HYDROXYZINE [Interacting]
     Active Substance: HYDROXYZINE HYDROCHLORIDE
     Indication: Depression
     Dosage: 25 MG, 3X PER DAY
  5. SERTRALINE [Interacting]
     Active Substance: SERTRALINE HYDROCHLORIDE
     Dosage: 50 MG, 1X PER DAY, IN THE MORNING
  6. ITOPRIDE [Interacting]
     Active Substance: ITOPRIDE
     Indication: Dyspepsia
     Dosage: 50 MG, 3X PER DAY
  7. ITOPRIDE [Interacting]
     Active Substance: ITOPRIDE
     Indication: Dyspepsia
     Dosage: 50 MG, 2X PER DAY

REACTIONS (11)
  - Depression [Unknown]
  - Asthenia [Unknown]
  - Headache [Recovering/Resolving]
  - Constipation [Recovered/Resolved]
  - Dyspepsia [Recovered/Resolved]
  - Nausea [Recovered/Resolved]
  - Paraesthesia [Recovered/Resolved]
  - Somnolence [Unknown]
  - Therapeutic product effect incomplete [Unknown]
  - Drug interaction [Unknown]
  - Asthenia [Unknown]
